FAERS Safety Report 22659973 (Version 1)
Quarter: 2023Q2

REPORT INFORMATION
  Report Type: Spontaneous
  Country: NL (occurrence: NL)
  Receive Date: 20230630
  Receipt Date: 20230630
  Transmission Date: 20230722
  Serious: Yes (Death)
  Sender: FDA-Public Use
  Company Number: NL-002147023-NVSC2023NL099222

PATIENT
  Age: 42 Year
  Sex: Male

DRUGS (11)
  1. OXYCODONE HYDROCHLORIDE [Suspect]
     Active Substance: OXYCODONE HYDROCHLORIDE
     Indication: Cancer pain
     Dosage: UNK, PRN
     Route: 065
     Dates: start: 20201102
  2. LORAZEPAM [Suspect]
     Active Substance: LORAZEPAM
     Indication: Product used for unknown indication
     Dosage: 2 MG SL 3DD
     Route: 060
     Dates: start: 20201106
  3. FENTANYL [Suspect]
     Active Substance: FENTANYL
     Indication: Product used for unknown indication
     Dosage: UNK
     Route: 065
     Dates: start: 20201106
  4. FENTANYL [Suspect]
     Active Substance: FENTANYL
     Dosage: 12
     Route: 065
     Dates: start: 20201106
  5. HALDOL [Suspect]
     Active Substance: HALOPERIDOL
     Indication: Product used for unknown indication
     Dosage: 2.5 MG SC. MAX 4 P PER DAY.
     Route: 058
     Dates: start: 20201106
  6. MORPHINE [Suspect]
     Active Substance: MORPHINE
     Indication: Dyspnoea
     Dosage: 6 DD 5 MG SC
     Route: 058
     Dates: start: 20201106
  7. MORPHINE [Suspect]
     Active Substance: MORPHINE
     Indication: Pain
  8. MIDAZOLAM [Suspect]
     Active Substance: MIDAZOLAM
     Indication: Agitation
     Dosage: 5 MG, UNKNOWN
     Route: 058
     Dates: start: 20201106
  9. MIDAZOLAM [Suspect]
     Active Substance: MIDAZOLAM
     Indication: Restlessness
     Dosage: 10 MG (WHEN NECESSARY, 6 TIMES A DAY)
     Route: 058
     Dates: start: 20201106
  10. NICOTINELL [Concomitant]
     Active Substance: NICOTINE
     Indication: Product used for unknown indication
     Dosage: 1 DOSAGE FORM, QD
     Route: 062
     Dates: start: 20201106
  11. NICOTINELL [Concomitant]
     Active Substance: NICOTINE
     Indication: Nicotine dependence
     Dosage: 1 D1
     Route: 062
     Dates: start: 20201106

REACTIONS (5)
  - Condition aggravated [Fatal]
  - Wrong product administered [Fatal]
  - Product prescribing issue [Fatal]
  - Somnolence [Unknown]
  - Dizziness [Unknown]
